FAERS Safety Report 11715693 (Version 2)
Quarter: 2015Q4

REPORT INFORMATION
  Report Type: Spontaneous
  Country: US (occurrence: US)
  Receive Date: 20151104
  Receipt Date: 20151110
  Transmission Date: 20160304
  Serious: No
  Sender: FDA-Public Use
  Company Number: US-ELI_LILLY_AND_COMPANY-US201109000847

PATIENT
  Age: 75 Year
  Sex: Female

DRUGS (2)
  1. FORTEO [Suspect]
     Active Substance: TERIPARATIDE
     Indication: OSTEOPOROSIS
     Dosage: 20 UG, QD
     Route: 065
     Dates: start: 201105
  2. FORTEO [Suspect]
     Active Substance: TERIPARATIDE
     Dosage: 20 UG, QD
     Route: 065
     Dates: end: 20120112

REACTIONS (9)
  - Hyperhidrosis [Unknown]
  - Arthralgia [Unknown]
  - Abdominal discomfort [Recovered/Resolved]
  - Pain in extremity [Unknown]
  - Bone pain [Unknown]
  - Vomiting [Recovered/Resolved]
  - Malaise [Not Recovered/Not Resolved]
  - Hearing impaired [Unknown]
  - Abdominal pain upper [Recovered/Resolved]

NARRATIVE: CASE EVENT DATE: 201111
